FAERS Safety Report 7867886-X (Version None)
Quarter: 2011Q4

REPORT INFORMATION
  Report Type: 
  Country: None (occurrence: None)
  Receive Date: 20111028
  Receipt Date: 20111018
  Transmission Date: 20120403
  Serious: Yes (Hospitalization, Other)
  Sender: FDA-Public Use
  Company Number: US-BRISTOL-MYERS SQUIBB COMPANY-16172041

PATIENT
  Age: 79 Year
  Sex: Female

DRUGS (8)
  1. CARDIZEM [Concomitant]
  2. SYMBICORT [Concomitant]
  3. COUMADIN [Suspect]
  4. BISOPROLOL [Concomitant]
  5. FORTEO [Suspect]
     Indication: OSTEOPOROSIS
     Dosage: INJ:REG 2, 6/2011 TO UNK, 20MCG,QD 7/2011
     Dates: start: 20060101
  6. BISOPROLOL [Concomitant]
  7. XOPENEX [Concomitant]
  8. NEXIUM [Concomitant]

REACTIONS (14)
  - CHRONIC OBSTRUCTIVE PULMONARY DISEASE [None]
  - MALAISE [None]
  - DYSPNOEA [None]
  - PLATELET COUNT DECREASED [None]
  - UPPER LIMB FRACTURE [None]
  - PAIN [None]
  - RECTAL HAEMORRHAGE [None]
  - HAEMORRHOIDS [None]
  - CARDIAC FAILURE CONGESTIVE [None]
  - OEDEMA PERIPHERAL [None]
  - ARTHROPATHY [None]
  - GAIT DISTURBANCE [None]
  - CARDIAC DISORDER [None]
  - COMPRESSION FRACTURE [None]
